FAERS Safety Report 8175208-2 (Version None)
Quarter: 2012Q1

REPORT INFORMATION
  Report Type: 
  Country: None (occurrence: None)
  Receive Date: 20120227
  Receipt Date: 20120217
  Transmission Date: 20120608
  Serious: Yes (Hospitalization)
  Sender: FDA-Public Use
  Company Number: 2012MA002310

PATIENT
  Age: 89 Year
  Sex: Female

DRUGS (6)
  1. FUROSEMIDE [Concomitant]
  2. DESLORATADINE [Concomitant]
  3. RAMIPRIL [Suspect]
     Indication: HYPERTENSION
     Dosage: 1.25 MG; PO
     Route: 048
     Dates: start: 20111230, end: 20120118
  4. ACETYLSALICYLIC ACID SRT [Concomitant]
  5. BETACAROTENE [Concomitant]
  6. CITALOPRAM HYDROBROMIDE [Suspect]
     Indication: DEPRESSION
     Dosage: 20 MG; PO
     Route: 048
     Dates: start: 20120116, end: 20120118

REACTIONS (2)
  - VIITH NERVE PARALYSIS [None]
  - SWELLING FACE [None]
